FAERS Safety Report 4826290-9 (Version None)
Quarter: 2005Q4

REPORT INFORMATION
  Report Type: 
  Country: None (occurrence: None)
  Receive Date: 20051014
  Receipt Date: 20050727
  Transmission Date: 20060501
  Serious: No
  Sender: FDA-Public Use
  Company Number: 2005SP002099

PATIENT
  Age: 64 Year
  Sex: Male
  Weight: 110.6777 kg

DRUGS (4)
  1. LUNESTA [Suspect]
     Indication: INSOMNIA
     Dosage: 3 MG; ORAL
     Route: 048
     Dates: start: 20050501
  2. LUNESTA [Suspect]
     Indication: SLEEP APNOEA SYNDROME
     Dosage: 3 MG; ORAL
     Route: 048
     Dates: start: 20050501
  3. NEURONTIN [Concomitant]
  4. AMBIEN [Concomitant]

REACTIONS (2)
  - DYSGEUSIA [None]
  - INITIAL INSOMNIA [None]
